FAERS Safety Report 17174216 (Version 1)
Quarter: 2019Q4

REPORT INFORMATION
  Report Type: Spontaneous
  Country: US (occurrence: US)
  Receive Date: 20191126
  Receipt Date: 20191126
  Transmission Date: 20200122
  Serious: Yes (Hospitalization)
  Sender: FDA-Public Use
  Company Number: None

PATIENT
  Age: 28 Year
  Sex: Female

DRUGS (9)
  1. SMZ/TMP DS [Concomitant]
     Active Substance: SULFAMETHOXAZOLE\TRIMETHOPRIM
  2. CIPROFLOXACN [Concomitant]
     Active Substance: CIPROFLOXACIN
  3. NYSTOP [Concomitant]
     Active Substance: NYSTATIN
  4. DALFAMPRIDINE 10MG ER TAB [Suspect]
     Active Substance: DALFAMPRIDINE
     Indication: MULTIPLE SCLEROSIS
     Route: 048
     Dates: start: 20191103
  5. PRIMIDONE. [Concomitant]
     Active Substance: PRIMIDONE
  6. NYSTATIN. [Concomitant]
     Active Substance: NYSTATIN
  7. BACLOFEN. [Concomitant]
     Active Substance: BACLOFEN
  8. FLUCONAZOLE. [Concomitant]
     Active Substance: FLUCONAZOLE
  9. SOLIFENACIN [Concomitant]
     Active Substance: SOLIFENACIN

REACTIONS (1)
  - Hypersensitivity [None]

NARRATIVE: CASE EVENT DATE: 201911
